FAERS Safety Report 9198477 (Version 1)
Quarter: 2013Q1

REPORT INFORMATION
  Report Type: Spontaneous
  Country: US (occurrence: None)
  Receive Date: 20120709
  Receipt Date: 20120709
  Transmission Date: 20140127
  Serious: Yes (Disabling, Other)
  Sender: FDA-Public Use
  Company Number: PHHY2011US58977

PATIENT
  Age: 68 Year
  Sex: Female
  Weight: 145 kg

DRUGS (1)
  1. GLEEVEC (IMATINIB) [Suspect]
     Indication: COLON CANCER
     Route: 048
     Dates: start: 20100119

REACTIONS (5)
  - Full blood count decreased [None]
  - Anaemia [None]
  - Fatigue [None]
  - Oedema [None]
  - Thrombocytopenia [None]
